FAERS Safety Report 21504218 (Version 2)
Quarter: 2022Q4

REPORT INFORMATION
  Report Type: Report from Study
  Country: JP (occurrence: JP)
  Receive Date: 20221025
  Receipt Date: 20221107
  Transmission Date: 20230113
  Serious: Yes (Death)
  Sender: FDA-Public Use
  Company Number: JP-TEVA-2022-JP-2819450

PATIENT

DRUGS (5)
  1. IRINOTECAN [Suspect]
     Active Substance: IRINOTECAN
     Indication: Colorectal cancer metastatic
     Dosage: GIVEN OVER 90 MIN ON DAY 1 OF EACH 2-WEEK CYCLE
     Route: 042
  2. RAMUCIRUMAB [Suspect]
     Active Substance: RAMUCIRUMAB
     Indication: Colorectal cancer metastatic
     Dosage: GIVEN OVER 60 MIN ON DAY 1 OF EACH 2-WEEK CYCLE
     Route: 041
  3. LEVOLEUCOVORIN CALCIUM [Suspect]
     Active Substance: LEVOLEUCOVORIN CALCIUM
     Indication: Colorectal cancer metastatic
     Dosage: GIVEN OVER 120 MIN ON DAY 1 OF EACH 2-WEEK CYCLE
     Route: 042
  4. FLUOROURACIL [Suspect]
     Active Substance: FLUOROURACIL
     Indication: Colorectal cancer metastatic
     Dosage: ON DAY 1 OF EACH 2-WEEK CYCLE
     Route: 040
  5. FLUOROURACIL [Suspect]
     Active Substance: FLUOROURACIL
     Dosage: GIVEN OVER 46H ON DAY 1 OF EACH 2-WEEK CYCLE
     Route: 041

REACTIONS (1)
  - Drug ineffective [Fatal]
